FAERS Safety Report 14615161 (Version 1)
Quarter: 2018Q1

REPORT INFORMATION
  Report Type: Spontaneous
  Country: US (occurrence: US)
  Receive Date: 20180308
  Receipt Date: 20180308
  Transmission Date: 20180509
  Serious: Yes (Disabling, Other)
  Sender: FDA-Public Use
  Company Number: US-PFIZER INC-2018091557

PATIENT
  Sex: Female

DRUGS (3)
  1. PREMARIN [Suspect]
     Active Substance: ESTROGENS, CONJUGATED
     Dosage: 0.3MG ONCE DAILY TABLET
     Route: 048
  2. PREMARIN [Suspect]
     Active Substance: ESTROGENS, CONJUGATED
     Indication: HYSTERECTOMY
     Dosage: 0.3MG ONCE DAILY TABLET
     Route: 048
  3. PREMARIN [Suspect]
     Active Substance: ESTROGENS, CONJUGATED
     Dosage: 0.3 MG, TAKE IT EVERY OTHER DAY
     Route: 048

REACTIONS (10)
  - Neuropathy peripheral [Not Recovered/Not Resolved]
  - Gait disturbance [Unknown]
  - Osteoporosis [Not Recovered/Not Resolved]
  - Amnesia [Unknown]
  - Intentional product misuse [Unknown]
  - Hot flush [Recovered/Resolved]
  - Back pain [Not Recovered/Not Resolved]
  - Body height decreased [Unknown]
  - Intervertebral disc degeneration [Unknown]
  - Weight decreased [Unknown]
